FAERS Safety Report 21395939 (Version 1)
Quarter: 2022Q3

REPORT INFORMATION
  Report Type: Spontaneous
  Country: DE (occurrence: DE)
  Receive Date: 20220930
  Receipt Date: 20220930
  Transmission Date: 20221026
  Serious: Yes (Hospitalization, Other)
  Sender: FDA-Public Use
  Company Number: DE-ADRED-05991-01

PATIENT
  Age: 85 Year
  Sex: Male
  Weight: 79 kg

DRUGS (16)
  1. LENALIDOMIDE [Suspect]
     Active Substance: LENALIDOMIDE
     Indication: Product used for unknown indication
     Dosage: 1 DOSAGE FORMS DAILY; 5 MG, 1-0-0-0, UNIT DOSE : 1 DF , FREQUENCY : OD
  2. DEXAMETHASONE [Suspect]
     Active Substance: DEXAMETHASONE
     Indication: Product used for unknown indication
     Dosage: 8 MG, ONCE A WEEK
  3. IXAZOMIB [Suspect]
     Active Substance: IXAZOMIB
     Indication: Product used for unknown indication
     Dosage: 2.3 MG, ONCE A WEEK
  4. CHOLECALCIFEROL [Concomitant]
     Active Substance: CHOLECALCIFEROL
     Indication: Product used for unknown indication
     Dosage: 20000 IU, EVERY 2 WEEKS
  5. DUTASTERIDE [Concomitant]
     Active Substance: DUTASTERIDE
     Indication: Product used for unknown indication
     Dosage: 1 DOSAGE FORMS DAILY; 0.5 MG, 1-0-0-0, UNIT DOSE : 1 DF , FREQUENCY : OD
  6. ACYCLOVIR [Concomitant]
     Active Substance: ACYCLOVIR
     Indication: Product used for unknown indication
     Dosage: 1 DOSAGE FORMS DAILY; 400 MG, 1-0-0-0, UNIT DOSE : 1 DF , FREQUENCY : OD
  7. MOVICOL [Concomitant]
     Active Substance: POLYETHYLENE GLYCOL 3350\POTASSIUM CHLORIDE\SODIUM BICARBONATE\SODIUM CHLORIDE
     Indication: Product used for unknown indication
     Dosage: 1 DOSAGE FORMS DAILY; 1-0-0-0, UNIT DOSE : 1 DF , FREQUENCY : OD
  8. ASPIRIN [Concomitant]
     Active Substance: ASPIRIN
     Indication: Product used for unknown indication
     Dosage: 1 DOSAGE FORMS DAILY; 100 MG, 1-0-0-0, UNIT DOSE : 1 DF , FREQUENCY : OD
  9. BISOPROLOL [Concomitant]
     Active Substance: BISOPROLOL
     Indication: Product used for unknown indication
     Dosage: 1 DOSAGE FORMS DAILY; 1.25 MG, 1-0-0-0, UNIT DOSE : 1 DF , FREQUENCY : OD
  10. SERTRALINE [Concomitant]
     Active Substance: SERTRALINE HYDROCHLORIDE
     Indication: Product used for unknown indication
     Dosage: 1 DOSAGE FORMS DAILY; 50 MG, 1-0-0-0, UNIT DOSE : 1 DF , FREQUENCY : OD
  11. TAMSULOSIN [Concomitant]
     Active Substance: TAMSULOSIN
     Indication: Product used for unknown indication
     Dosage: 1 DOSAGE FORMS DAILY; 0.4 MG, 1-0-0-0, UNIT DOSE : 1 DF , FREQUENCY : OD
  12. CAPROS [Concomitant]
     Indication: Product used for unknown indication
     Dosage: 1 DOSAGE FORMS DAILY; 10 MG, 1-0-0-0, UNIT DOSE : 1 DF , FREQUENCY : OD, STRENGTH : 10 MG
  13. ATORVASTATIN [Concomitant]
     Active Substance: ATORVASTATIN
     Indication: Product used for unknown indication
     Dosage: .5 DOSAGE FORMS DAILY; 40 MG, 0.5-0-0-0, UNIT DOSE : 0.5 DF , FREQUENCY : OD
  14. CLOPIDOGREL [Concomitant]
     Active Substance: CLOPIDOGREL BISULFATE
     Indication: Product used for unknown indication
     Dosage: 1 DOSAGE FORMS DAILY; 75 MG, 1-0-0-0, UNIT DOSE : 1 DF , FREQUENCY : OD
  15. CAPROS AKUT [Concomitant]
     Indication: Product used for unknown indication
     Dosage: 10 MG, UP TO 6X DAILY, STRENGTH : 10 MG
  16. METAMIZOLE [Concomitant]
     Active Substance: METAMIZOLE
     Indication: Product used for unknown indication
     Dosage: 2 DOSAGE FORMS DAILY; 500 MG, 1-0-1-0, UNIT DOSE : 1 DF , FREQUENCY : BD

REACTIONS (4)
  - Acute kidney injury [Unknown]
  - Pneumonia [Unknown]
  - Cough [Unknown]
  - Dyspnoea [Unknown]
